FAERS Safety Report 15371094 (Version 3)
Quarter: 2019Q1

REPORT INFORMATION
  Report Type: Report from Study
  Country: US (occurrence: US)
  Receive Date: 20180911
  Receipt Date: 20190110
  Transmission Date: 20190417
  Serious: Yes (Other)
  Sender: FDA-Public Use
  Company Number: US-JNJFOC-20180527201

PATIENT
  Age: 87 Year
  Sex: Male

DRUGS (34)
  1. IMBRUVICA [Suspect]
     Active Substance: IBRUTINIB
     Indication: WALDENSTROM^S MACROGLOBULINAEMIA
     Route: 048
     Dates: start: 20180310, end: 20180523
  2. MULTIVITAMINS [Concomitant]
     Active Substance: VITAMINS
  3. ALLEGRA [Concomitant]
     Active Substance: FEXOFENADINE HYDROCHLORIDE
  4. IMBRUVICA [Suspect]
     Active Substance: IBRUTINIB
     Indication: WALDENSTROM^S MACROGLOBULINAEMIA
     Route: 048
     Dates: start: 20180809, end: 2018
  5. ZOCOR [Concomitant]
     Active Substance: SIMVASTATIN
  6. DEXILANT [Concomitant]
     Active Substance: DEXLANSOPRAZOLE
  7. CURCUMA LONGA RHIZOME [Concomitant]
     Active Substance: HERBALS\TURMERIC
  8. IMBRUVICA [Suspect]
     Active Substance: IBRUTINIB
     Indication: WALDENSTROM^S MACROGLOBULINAEMIA
     Route: 048
     Dates: start: 20180110, end: 20180309
  9. HCTZ [Concomitant]
     Active Substance: HYDROCHLOROTHIAZIDE
  10. CYANOCOBALAMIN. [Concomitant]
     Active Substance: CYANOCOBALAMIN
  11. MAGNESIUM [Concomitant]
     Active Substance: MAGNESIUM
  12. IMBRUVICA [Suspect]
     Active Substance: IBRUTINIB
     Indication: WALDENSTROM^S MACROGLOBULINAEMIA
     Route: 048
     Dates: start: 20180810
  13. ASPIRIN. [Concomitant]
     Active Substance: ASPIRIN
  14. SINGULAIR [Concomitant]
     Active Substance: MONTELUKAST SODIUM
  15. SODIUM FLUORIDE. [Concomitant]
     Active Substance: SODIUM FLUORIDE
  16. TAMSULOSIN HYDROCHLORIDE. [Concomitant]
     Active Substance: TAMSULOSIN HYDROCHLORIDE
  17. FLONASE [Concomitant]
     Active Substance: FLUTICASONE PROPIONATE
  18. BENZONATATE. [Concomitant]
     Active Substance: BENZONATATE
  19. IMBRUVICA [Suspect]
     Active Substance: IBRUTINIB
     Indication: WALDENSTROM^S MACROGLOBULINAEMIA
     Route: 048
     Dates: start: 20180630, end: 20180809
  20. IMBRUVICA [Suspect]
     Active Substance: IBRUTINIB
     Indication: WALDENSTROM^S MACROGLOBULINAEMIA
     Route: 048
     Dates: start: 20180811
  21. COQ10 [Concomitant]
     Active Substance: UBIDECARENONE
  22. VITAMIN B [Concomitant]
     Active Substance: VITAMIN B
  23. VALACYCLOVIR [Concomitant]
     Active Substance: VALACYCLOVIR HYDROCHLORIDE
  24. LOSARTAN. [Concomitant]
     Active Substance: LOSARTAN
  25. BIFIDOBACTERIUM LACTIS [Concomitant]
     Active Substance: BIFIDOBACTERIUM ANIMALIS LACTIS
  26. LABETALOL [Concomitant]
     Active Substance: LABETALOL\LABETALOL HYDROCHLORIDE
  27. AMOXICILLIN. [Concomitant]
     Active Substance: AMOXICILLIN
  28. VELTRIX [Concomitant]
     Active Substance: LIDOCAINE\MENTHOL
  29. IMBRUVICA [Suspect]
     Active Substance: IBRUTINIB
     Indication: WALDENSTROM^S MACROGLOBULINAEMIA
     Route: 048
     Dates: start: 20180524, end: 20180629
  30. IMBRUVICA [Suspect]
     Active Substance: IBRUTINIB
     Indication: WALDENSTROM^S MACROGLOBULINAEMIA
     Route: 048
     Dates: start: 20180630, end: 20180810
  31. IMBRUVICA [Suspect]
     Active Substance: IBRUTINIB
     Indication: WALDENSTROM^S MACROGLOBULINAEMIA
     Route: 048
     Dates: start: 20180524, end: 20180629
  32. COSAMINE [Concomitant]
  33. COLACE [Concomitant]
     Active Substance: DOCUSATE SODIUM
  34. PRILOSEC [Concomitant]
     Active Substance: OMEPRAZOLE MAGNESIUM

REACTIONS (12)
  - Cholelithiasis [Unknown]
  - Fatigue [Unknown]
  - Rib fracture [Unknown]
  - Sepsis [Unknown]
  - Amnesia [Unknown]
  - Arthritis [Unknown]
  - Cough [Unknown]
  - Incorrect dose administered [Unknown]
  - Off label use [Unknown]
  - Medical procedure [Unknown]
  - Depression [Unknown]
  - Muscle spasms [Not Recovered/Not Resolved]

NARRATIVE: CASE EVENT DATE: 2018
